FAERS Safety Report 15822973 (Version 2)
Quarter: 2019Q1

REPORT INFORMATION
  Report Type: Report from Study
  Country: CA (occurrence: CA)
  Receive Date: 20190114
  Receipt Date: 20190325
  Transmission Date: 20190417
  Serious: Yes (Death)
  Sender: FDA-Public Use
  Company Number: CA-HLSUS-2018-CA-001912

PATIENT
  Age: 74 Year
  Sex: Female

DRUGS (1)
  1. CLOZARIL [Suspect]
     Active Substance: CLOZAPINE
     Route: 048
     Dates: start: 20080929, end: 20180907

REACTIONS (4)
  - Neoplasm malignant [Unknown]
  - Death [Fatal]
  - Urinary tract infection [Unknown]
  - Mania [Unknown]

NARRATIVE: CASE EVENT DATE: 20190321
